FAERS Safety Report 13997201 (Version 2)
Quarter: 2017Q3

REPORT INFORMATION
  Report Type: Spontaneous
  Country: DE (occurrence: DE)
  Receive Date: 20170921
  Receipt Date: 20170922
  Transmission Date: 20171128
  Serious: Yes (Other)
  Sender: FDA-Public Use
  Company Number: DE-BAYER-2016-232287

PATIENT
  Age: 24 Year
  Sex: Female
  Weight: 70 kg

DRUGS (3)
  1. MAGNETRANS [Concomitant]
     Dosage: 1 DF, TID
  2. JAYDESS [Suspect]
     Active Substance: LEVONORGESTREL
     Indication: CONTRACEPTION
     Dosage: 14 MCG/24HR, CONT
     Route: 015
     Dates: start: 20151120, end: 20161205
  3. RICINUS COMMUNIS [Concomitant]

REACTIONS (9)
  - Retained placenta or membranes [None]
  - Anaemia of pregnancy [None]
  - Uterine hypotonus [None]
  - Pregnancy with contraceptive device [None]
  - Postpartum haemorrhage [None]
  - Drug ineffective [None]
  - Gestational diabetes [None]
  - Vulvovaginal injury [None]
  - Gestational hypertension [None]

NARRATIVE: CASE EVENT DATE: 20161201
